FAERS Safety Report 13885383 (Version 1)
Quarter: 2017Q3

REPORT INFORMATION
  Report Type: Report from Study
  Country: IT (occurrence: IT)
  Receive Date: 20170821
  Receipt Date: 20170821
  Transmission Date: 20171127
  Serious: Yes (Other)
  Sender: FDA-Public Use
  Company Number: IT-ROCHE-1877324

PATIENT

DRUGS (2)
  1. CAPECITABINE. [Suspect]
     Active Substance: CAPECITABINE
     Indication: COLORECTAL CANCER
     Dosage: FROM DAYS 1-14
     Route: 048
  2. OXALIPLATIN. [Suspect]
     Active Substance: OXALIPLATIN
     Indication: COLORECTAL CANCER
     Dosage: 70 MG/M 2 DILUTED IN 100 ML OF DEXTROSE 5%, GIVEN AS A 12-HOUR CONTINUOUS INFUSION (FROM 8.00 A.M. T
     Route: 042

REACTIONS (8)
  - Peripheral sensory neuropathy [Unknown]
  - Palmar-plantar erythrodysaesthesia syndrome [Unknown]
  - Asthenia [Unknown]
  - Diarrhoea [Unknown]
  - Nausea [Unknown]
  - Mucosal inflammation [Unknown]
  - Fatigue [Unknown]
  - Vomiting [Unknown]
